FAERS Safety Report 9939126 (Version 1)
Quarter: 2014Q1

REPORT INFORMATION
  Report Type: Spontaneous
  Country: ES (occurrence: ES)
  Receive Date: 20140303
  Receipt Date: 20140303
  Transmission Date: 20141002
  Serious: Yes (Other)
  Sender: FDA-Public Use
  Company Number: ES-UCBSA-113672

PATIENT
  Age: 0 None
  Sex: Female

DRUGS (1)
  1. KEPPRA [Suspect]
     Dosage: 1500 MG DAILY
     Route: 064
     Dates: start: 2012, end: 20130616

REACTIONS (3)
  - Premature baby [Recovered/Resolved]
  - Foetal exposure during pregnancy [Recovered/Resolved]
  - Exposure during breast feeding [Unknown]
